FAERS Safety Report 9926108 (Version 1)
Quarter: 2014Q1

REPORT INFORMATION
  Report Type: Spontaneous
  Country: GB (occurrence: GB)
  Receive Date: 20140226
  Receipt Date: 20140226
  Transmission Date: 20141002
  Serious: Yes (Hospitalization)
  Sender: FDA-Public Use
  Company Number: GB-UCBSA-113088

PATIENT
  Sex: Male

DRUGS (1)
  1. CIMZIA [Suspect]
     Indication: RHEUMATOID ARTHRITIS
     Dosage: 200MG STRENGTH, FREQUENCY: EACH FORTNIGHT
     Route: 058
     Dates: start: 20120626

REACTIONS (1)
  - Pneumonia [Not Recovered/Not Resolved]
